FAERS Safety Report 19183574 (Version 1)
Quarter: 2021Q2

REPORT INFORMATION
  Report Type: Spontaneous
  Country: US (occurrence: US)
  Receive Date: 20210427
  Receipt Date: 20210427
  Transmission Date: 20210717
  Serious: Yes (Other)
  Sender: FDA-Public Use
  Company Number: US-JNJFOC-20210438572

PATIENT

DRUGS (1)
  1. ELMIRON [Suspect]
     Active Substance: PENTOSAN POLYSULFATE SODIUM
     Indication: CYSTITIS INTERSTITIAL
     Dosage: LAST ADMINISTRATION IN AUG?2011
     Route: 065
     Dates: start: 201102

REACTIONS (3)
  - Open angle glaucoma [Unknown]
  - Vitreous detachment [Unknown]
  - Cataract [Unknown]
